FAERS Safety Report 7445346-8 (Version None)
Quarter: 2011Q2

REPORT INFORMATION
  Report Type: 
  Country: None (occurrence: None)
  Receive Date: 20110429
  Receipt Date: 20100428
  Transmission Date: 20111010
  Serious: No
  Sender: FDA-Public Use
  Company Number: A0857757A

PATIENT
  Sex: Female

DRUGS (2)
  1. CHEMOTHERAPY [Suspect]
     Route: 065
  2. ZOFRAN [Suspect]
     Route: 065

REACTIONS (1)
  - HERPES VIRUS INFECTION [None]
